FAERS Safety Report 10115043 (Version 2)
Quarter: 2015Q1

REPORT INFORMATION
  Report Type: Other
  Country: US (occurrence: US)
  Receive Date: 20140426
  Receipt Date: 20150204
  Transmission Date: 20150720
  Serious: Yes (Hospitalization, Other)
  Sender: FDA-Public Use
  Company Number: US-GSKPPD-2014GSK015475

PATIENT
  Age: 64 Year
  Sex: Female
  Weight: 75 kg

DRUGS (8)
  1. ALTACE [Concomitant]
     Active Substance: RAMIPRIL
     Route: 048
  2. HEPARIN [Concomitant]
     Active Substance: HEPARIN SODIUM
     Dosage: TREATMENT MEDICATION
     Dates: start: 20071005, end: 20071005
  3. INTEGRILIN [Concomitant]
     Active Substance: EPTIFIBATIDE
     Dosage: TREATMENT MEDICATION
     Route: 042
     Dates: start: 20071005, end: 200710
  4. AVANDIA [Suspect]
     Active Substance: ROSIGLITAZONE MALEATE
     Indication: DIABETES MELLITUS
     Dosage: DATES OF AVANDIA USE COULD NOT BE CONFIRMED IN RECORDS REVIEWED.
     Route: 048
  5. LOPRESSOR [Concomitant]
     Active Substance: METOPROLOL TARTRATE
     Dosage: TREATMENT MEDICATION
     Route: 042
     Dates: start: 20071005, end: 20071005
  6. PLAVIX [Concomitant]
     Active Substance: CLOPIDOGREL BISULFATE
     Dosage: TREATMENT MEDICATION
     Dates: start: 20071005, end: 20071005
  7. LOPRESSOR [Concomitant]
     Active Substance: METOPROLOL TARTRATE
     Dosage: TREATMENT MEDICATION
     Route: 048
     Dates: start: 200710
  8. ASPIRIN. [Concomitant]
     Active Substance: ASPIRIN
     Route: 048

REACTIONS (2)
  - Coronary artery disease [Recovered/Resolved]
  - Myocardial infarction [Unknown]

NARRATIVE: CASE EVENT DATE: 20071004
